FAERS Safety Report 14339721 (Version 2)
Quarter: 2018Q1

REPORT INFORMATION
  Report Type: Spontaneous
  Country: CH (occurrence: CH)
  Receive Date: 20171230
  Receipt Date: 20180108
  Transmission Date: 20180509
  Serious: Yes (Other)
  Sender: FDA-Public Use
  Company Number: PHHY2017CH190729

PATIENT
  Age: 77 Year
  Sex: Female
  Weight: 52 kg

DRUGS (7)
  1. TOBRADEX [Suspect]
     Active Substance: DEXAMETHASONE\TOBRAMYCIN
     Dosage: 1 GTT, 7QD (3 GTTS/DAY RIGHT EYE AND 4 GTT/DAY IN LEFT EYE)
     Route: 047
     Dates: start: 20170626, end: 20170703
  2. TEMESTA (LORAZEPAM) [Concomitant]
     Active Substance: LORAZEPAM
     Indication: PRODUCT USED FOR UNKNOWN INDICATION
     Route: 048
  3. TOBRADEX [Suspect]
     Active Substance: DEXAMETHASONE\TOBRAMYCIN
     Dosage: 1 GTT, 6QD (3 GTTS/DAY RIGHT EYE AND 4 GTT/DAY IN LEFT EYE   )
     Route: 047
     Dates: start: 20170704, end: 20170710
  4. TOBRADEX [Suspect]
     Active Substance: DEXAMETHASONE\TOBRAMYCIN
     Indication: CATARACT OPERATION
     Dosage: 1 GTT, QID (4 GTTS/DAY RIGHT EYE )
     Route: 047
     Dates: start: 20170614, end: 20170626
  5. TOBRADEX [Suspect]
     Active Substance: DEXAMETHASONE\TOBRAMYCIN
     Dosage: 1 GTT, QID (1 GTTS/DAY RIGHT EYE AND 3 GTT/DAY IN LEFT EYE  )
     Route: 047
     Dates: start: 20170711, end: 20170717
  6. TOBRADEX [Suspect]
     Active Substance: DEXAMETHASONE\TOBRAMYCIN
     Dosage: 1 GTT, BID
     Route: 047
     Dates: start: 20170718, end: 20170719
  7. INDOPHTAL [Concomitant]
     Indication: CATARACT OPERATION
     Dosage: UNK
     Route: 047
     Dates: start: 2017, end: 2017

REACTIONS (22)
  - Asthenia [Recovering/Resolving]
  - Swelling face [Recovering/Resolving]
  - Tachycardia [Recovering/Resolving]
  - Back pain [Recovering/Resolving]
  - Breast pain [Recovering/Resolving]
  - Visual impairment [Recovering/Resolving]
  - Fear [Recovering/Resolving]
  - Thinking abnormal [Recovering/Resolving]
  - Dyspnoea [Recovering/Resolving]
  - Depression [Recovering/Resolving]
  - Erythema [Recovering/Resolving]
  - Headache [Recovering/Resolving]
  - Myocardial infarction [Recovering/Resolving]
  - Hot flush [Recovering/Resolving]
  - Diarrhoea [Recovering/Resolving]
  - Feeling cold [Recovering/Resolving]
  - Increased upper airway secretion [Recovering/Resolving]
  - Paraesthesia [Recovering/Resolving]
  - Chills [Recovering/Resolving]
  - Muscular weakness [Recovering/Resolving]
  - Pollakiuria [Recovering/Resolving]
  - Nausea [Recovering/Resolving]

NARRATIVE: CASE EVENT DATE: 20170719
